FAERS Safety Report 5929723-X (Version None)
Quarter: 2008Q4

REPORT INFORMATION
  Report Type: 
  Country: None (occurrence: None)
  Receive Date: 20081021
  Receipt Date: 20081010
  Transmission Date: 20090506
  Serious: Yes (Hospitalization)
  Sender: FDA-Public Use
  Company Number: 2008BI020625

PATIENT
  Age: 52 Year
  Sex: Female
  Weight: 90.7194 kg

DRUGS (4)
  1. AVONEX [Suspect]
     Indication: MULTIPLE SCLEROSIS
     Dosage: IM; 30 UG;QW;IM
     Route: 030
     Dates: start: 20030707
  2. AVONEX [Suspect]
     Indication: MULTIPLE SCLEROSIS
     Dosage: IM; 30 UG;QW;IM
     Route: 030
     Dates: start: 20030830
  3. PROVIGIL [Concomitant]
  4. . [Concomitant]

REACTIONS (14)
  - ARTHRALGIA [None]
  - ARTHRITIS [None]
  - BACK PAIN [None]
  - BURSITIS [None]
  - DEPRESSION [None]
  - GAIT DISTURBANCE [None]
  - HYPERLIPIDAEMIA [None]
  - HYPERTENSION [None]
  - INCISION SITE PAIN [None]
  - LIVER FUNCTION TEST ABNORMAL [None]
  - LOSS OF EMPLOYMENT [None]
  - OSTEOARTHRITIS [None]
  - POLLAKIURIA [None]
  - TENDONITIS [None]
